FAERS Safety Report 13300006 (Version 1)
Quarter: 2017Q1

REPORT INFORMATION
  Report Type: Spontaneous
  Country: US (occurrence: US)
  Receive Date: 20170306
  Receipt Date: 20170306
  Transmission Date: 20170428
  Serious: Yes (Hospitalization)
  Sender: FDA-Public Use
  Company Number: US-VIFOR (INTERNATIONAL) INC.-VIT-2017-02293

PATIENT
  Sex: Female

DRUGS (13)
  1. VELTASSA [Suspect]
     Active Substance: PATIROMER
     Indication: HYPERKALAEMIA
     Route: 048
     Dates: start: 20160617
  2. SODIUM BICARBONATE. [Concomitant]
     Active Substance: SODIUM BICARBONATE
  3. NEPHROCAPS [Concomitant]
     Active Substance: ASCORBIC ACID\BIOTIN\CYANOCOBALAMIN\FOLIC ACID\NIACIN\PANTOTHENIC ACID\PYRIDOXINE\RIBOFLAVIN\THIAMINE
  4. PREDNISONE. [Concomitant]
     Active Substance: PREDNISONE
  5. NOVOLOG [Concomitant]
     Active Substance: INSULIN ASPART
  6. TACROLIMUS. [Concomitant]
     Active Substance: TACROLIMUS
  7. RENVELA [Concomitant]
     Active Substance: SEVELAMER CARBONATE
  8. FAMOTIDINE. [Concomitant]
     Active Substance: FAMOTIDINE
  9. COUMADIN [Concomitant]
     Active Substance: WARFARIN SODIUM
  10. LIPITOR [Concomitant]
     Active Substance: ATORVASTATIN CALCIUM
  11. LANTUS [Concomitant]
     Active Substance: INSULIN GLARGINE
  12. MIDODRINE HYDROCHLORIDE. [Concomitant]
     Active Substance: MIDODRINE HYDROCHLORIDE
  13. KAYEXALATE [Concomitant]
     Active Substance: SODIUM POLYSTYRENE SULFONATE

REACTIONS (1)
  - Hospitalisation [Unknown]
